FAERS Safety Report 8833111 (Version 1)
Quarter: 2012Q4

REPORT INFORMATION
  Report Type: 
  Country: GB (occurrence: GB)
  Receive Date: 20121010
  Receipt Date: 20121010
  Transmission Date: 20130627
  Serious: Yes (Hospitalization)
  Sender: FDA-Public Use
  Company Number: GB-JNJFOC-20121003069

PATIENT
  Age: 4 Year
  Sex: Male

DRUGS (1)
  1. CALPOL [Suspect]
     Indication: PAIN
     Route: 065

REACTIONS (4)
  - Asthma [Unknown]
  - Scratch [Unknown]
  - Insomnia [Unknown]
  - Screaming [Unknown]
